FAERS Safety Report 7114411-7 (Version None)
Quarter: 2010Q4

REPORT INFORMATION
  Report Type: 
  Country: None (occurrence: None)
  Receive Date: 20101119
  Receipt Date: 20101112
  Transmission Date: 20110411
  Serious: Yes (Death, Other)
  Sender: FDA-Public Use
  Company Number: US-PFIZER INC-2010000998

PATIENT
  Sex: Female

DRUGS (4)
  1. PAROXETINE [Suspect]
     Route: 048
  2. HYDROXYZINE HCL [Suspect]
     Route: 048
  3. PARACETAMOL [Suspect]
     Route: 048
  4. METOPROLOL [Suspect]
     Route: 048

REACTIONS (1)
  - COMPLETED SUICIDE [None]
